FAERS Safety Report 7628620-1 (Version None)
Quarter: 2011Q3

REPORT INFORMATION
  Report Type: 
  Country: None (occurrence: None)
  Receive Date: 20110722
  Receipt Date: 20110712
  Transmission Date: 20111222
  Serious: Yes (Hospitalization)
  Sender: FDA-Public Use
  Company Number: FR-SANOFI-AVENTIS-2011SA044547

PATIENT
  Age: 35 Year
  Sex: Male

DRUGS (2)
  1. NOVORAPID [Concomitant]
  2. LANTUS [Suspect]
     Indication: TYPE 1 DIABETES MELLITUS
     Route: 058
     Dates: start: 20090101

REACTIONS (2)
  - PRODUCT QUALITY ISSUE [None]
  - DIABETIC KETOACIDOTIC HYPERGLYCAEMIC COMA [None]
